FAERS Safety Report 7952091-9 (Version None)
Quarter: 2011Q4

REPORT INFORMATION
  Report Type: 
  Country: None (occurrence: None)
  Receive Date: 20111201
  Receipt Date: 20111124
  Transmission Date: 20120403
  Serious: Yes (Other)
  Sender: FDA-Public Use
  Company Number: PHHY2011BR103414

PATIENT
  Age: 66 Year
  Sex: Female

DRUGS (2)
  1. FORMOTEROL FUMARATE [Suspect]
  2. FORADIL [Concomitant]

REACTIONS (3)
  - ASTHMA [None]
  - DYSPHONIA [None]
  - DRUG INEFFECTIVE [None]
